FAERS Safety Report 18323552 (Version 1)
Quarter: 2020Q3

REPORT INFORMATION
  Report Type: Spontaneous
  Country: US (occurrence: US)
  Receive Date: 20200928
  Receipt Date: 20200928
  Transmission Date: 20201103
  Serious: No
  Sender: FDA-Public Use
  Company Number: None

PATIENT
  Age: 54 Year
  Sex: Male

DRUGS (1)
  1. SKINTEK SKIN TAG REMOVER [Suspect]
     Active Substance: HOMEOPATHICS
     Route: 058

REACTIONS (1)
  - Asthma [None]
